FAERS Safety Report 9917192 (Version 2)
Quarter: 2014Q1

REPORT INFORMATION
  Report Type: Spontaneous
  Country: JP (occurrence: JP)
  Receive Date: 20140221
  Receipt Date: 20140221
  Transmission Date: 20141002
  Serious: Yes (Other)
  Sender: FDA-Public Use
  Company Number: JP-NAPPMUNDI-DEU-2014-0013659

PATIENT
  Sex: Female

DRUGS (1)
  1. OXYCODONE HCL PR TABLET 10 MG [Suspect]
     Indication: PRODUCT USED FOR UNKNOWN INDICATION
     Dosage: 10 MG, DAILY
     Route: 048

REACTIONS (2)
  - Somnolence [Unknown]
  - Fracture [Not Recovered/Not Resolved]
